FAERS Safety Report 19689356 (Version 2)
Quarter: 2021Q3

REPORT INFORMATION
  Report Type: Spontaneous
  Country: JP (occurrence: JP)
  Receive Date: 20210812
  Receipt Date: 20210816
  Transmission Date: 20211014
  Serious: Yes (Other)
  Sender: FDA-Public Use
  Company Number: JP-009507513-2108JPN000750J

PATIENT
  Age: 7 Decade
  Sex: Female

DRUGS (2)
  1. CEFTRIAXONE SODIUM. [Concomitant]
     Active Substance: CEFTRIAXONE SODIUM
     Indication: ENDOCARDITIS
     Route: 065
  2. CUBICIN [Suspect]
     Active Substance: DAPTOMYCIN
     Indication: STAPHYLOCOCCAL INFECTION
     Dosage: UNK
     Route: 041

REACTIONS (2)
  - Mitral valve incompetence [Recovered/Resolved]
  - Hypoxia [Recovered/Resolved]
